FAERS Safety Report 4975891-6 (Version None)
Quarter: 2006Q2

REPORT INFORMATION
  Report Type: 
  Country: None (occurrence: None)
  Receive Date: 20060412
  Receipt Date: 20060208
  Transmission Date: 20061013
  Serious: Yes (Other)
  Sender: FDA-Public Use
  Company Number: 805#1#2006-00006

PATIENT
  Age: 2 Day
  Sex: Female

DRUGS (8)
  1. ALPROSTADIL [Suspect]
     Indication: HEART DISEASE CONGENITAL
     Dosage: SEE IMAGE
     Route: 041
     Dates: start: 20050613, end: 20050619
  2. ALPROSTADIL [Suspect]
     Indication: HEART DISEASE CONGENITAL
     Dosage: SEE IMAGE
     Route: 041
     Dates: start: 20050620, end: 20050622
  3. ALPROSTADIL [Suspect]
     Indication: HEART DISEASE CONGENITAL
     Dosage: SEE IMAGE
     Route: 041
     Dates: start: 20050623, end: 20050624
  4. GLUCOSE (GLUCOSE) [Concomitant]
  5. KAYTWON (MENATETRENONE) [Concomitant]
  6. LEVOFLOXACIN [Concomitant]
  7. KAYTWO SYRUP (MENATETRENONE) [Concomitant]
  8. PHYSIO 35 (CALCIUM CHLORIDE HEXAHYDRATE, POTASSIUM CHLORIDE, SODIUM AC [Concomitant]

REACTIONS (1)
  - INFANTILE APNOEIC ATTACK [None]
